FAERS Safety Report 7280516-3 (Version None)
Quarter: 2011Q1

REPORT INFORMATION
  Report Type: 
  Country: None (occurrence: None)
  Receive Date: 20110208
  Receipt Date: 20110127
  Transmission Date: 20110831
  Serious: Yes (Disabling)
  Sender: FDA-Public Use
  Company Number: PHHY2011GB06414

PATIENT
  Age: 82 Year
  Sex: Female

DRUGS (8)
  1. CODEINE SULFATE [Concomitant]
     Dosage: UNK
  2. AMIODARONE HYDROCHLORIDE [Suspect]
     Indication: ATRIAL FIBRILLATION
     Dosage: 1200 MG, UNK
     Route: 042
     Dates: start: 20110106
  3. NEBIVOLOL [Concomitant]
     Dosage: UNK
  4. ASPIRIN [Concomitant]
     Dosage: UNK
  5. PARACETAMOL [Concomitant]
     Dosage: UNK
  6. AMIODARONE HYDROCHLORIDE [Suspect]
     Dosage: 200 MG, QD
     Route: 048
  7. ENOXAPARIN SODIUM [Concomitant]
     Dosage: UNK
  8. EZETIMIBE [Concomitant]
     Dosage: UNK

REACTIONS (1)
  - DEAFNESS [None]
